FAERS Safety Report 4945768-0 (Version None)
Quarter: 2006Q1

REPORT INFORMATION
  Report Type: 
  Country: None (occurrence: None)
  Receive Date: 20060117
  Receipt Date: 20050321
  Transmission Date: 20060701
  Serious: Yes (Other)
  Sender: FDA-Public Use
  Company Number: A03200500792

PATIENT
  Age: 72 Year
  Sex: Male
  Weight: 126.07 kg

DRUGS (16)
  1. PLAVIX [Suspect]
     Indication: STENT PLACEMENT
     Dosage: 75MG QD ORAL
     Route: 048
     Dates: start: 20050310
  2. 70% NPH HUMAN INSULIN [Concomitant]
  3. 30% REGULAR HUMAN INSULIN [Concomitant]
  4. CAPTOPRIL [Concomitant]
  5. IRBESARTAN [Concomitant]
  6. METOPROLOL TARTRATE [Concomitant]
  7. DIGOXIN [Concomitant]
  8. ISOSORBIDE MONONITRATE [Concomitant]
  9. FUROSEMIDE [Concomitant]
  10. POTASSIUM CHLORIDE [Concomitant]
  11. ATORVASTATIN CALCIUM [Concomitant]
  12. ACETYLSALICYLIC ACID SRT [Concomitant]
  13. FLUTICASONE PROPIONATE [Concomitant]
  14. SALMETEROL [Concomitant]
  15. HYDROCODONE BITARTRATE [Concomitant]
  16. ACETAMINOPHEN [Concomitant]

REACTIONS (4)
  - HYPOAESTHESIA ORAL [None]
  - PRURITUS [None]
  - RASH [None]
  - SWELLING FACE [None]
